FAERS Safety Report 8480304 (Version 5)
Quarter: 2012Q4

REPORT INFORMATION
  Report Type: Report from Study
  Country: IT (occurrence: IT)
  Receive Date: 20120328
  Receipt Date: 20121015
  Transmission Date: 20130627
  Serious: Yes (Hospitalization)
  Sender: FDA-Public Use
  Company Number: IT-ROCHE-1052933

PATIENT
  Age: 42 Year
  Sex: Male
  Weight: 75 kg

DRUGS (7)
  1. PEG-INTERFERON ALFA 2A [Suspect]
     Indication: HEPATITIS C
     Route: 058
     Dates: start: 20120225
  2. PEG-INTERFERON ALFA 2A [Suspect]
     Indication: HIV INFECTION
  3. RIBAVIRIN [Suspect]
     Indication: HEPATITIS C
     Route: 048
     Dates: start: 20120225
  4. RIBAVIRIN [Suspect]
     Indication: HIV INFECTION
  5. BI 201335 [Suspect]
     Indication: HEPATITIS C
     Route: 048
     Dates: start: 20120225
  6. BI 201335 [Suspect]
     Indication: HIV INFECTION
  7. CITALOPRAM [Concomitant]
     Indication: ANXIETY
     Route: 048
     Dates: start: 20120224

REACTIONS (1)
  - Infected cyst [Recovered/Resolved]
